FAERS Safety Report 5608131-5 (Version None)
Quarter: 2008Q1

REPORT INFORMATION
  Report Type: 
  Country: None (occurrence: None)
  Receive Date: 20080130
  Receipt Date: 20080118
  Transmission Date: 20080703
  Serious: Yes (Hospitalization)
  Sender: FDA-Public Use
  Company Number: FR-GILEAD-2007-0014435

PATIENT
  Sex: Male
  Weight: 67.7 kg

DRUGS (13)
  1. TRUVADA [Suspect]
     Indication: HIV INFECTION
     Route: 048
     Dates: start: 20070306
  2. PEGASYS [Suspect]
     Indication: HEPATITIS B
     Route: 058
     Dates: start: 20070309
  3. RIMIFON [Suspect]
     Indication: ANTIBIOTIC PROPHYLAXIS
     Route: 048
     Dates: start: 20070424, end: 20070521
  4. OFLOCET [Suspect]
     Indication: ANTIBIOTIC PROPHYLAXIS
     Dates: start: 20070424, end: 20070521
  5. ZIAGEN [Concomitant]
     Indication: HIV INFECTION
     Route: 048
     Dates: start: 20060916
  6. REYATAZ [Concomitant]
     Indication: HIV INFECTION
     Dates: start: 20050917
  7. NORVIR [Concomitant]
     Indication: HIV INFECTION
     Dates: start: 20050917
  8. CALTRAT D3 [Concomitant]
     Indication: OSTEOPOROSIS
  9. INEXIUM 40 [Concomitant]
  10. NEURONTIN [Concomitant]
  11. URBANYL [Concomitant]
  12. INSULATARD [Concomitant]
     Indication: DIABETES MELLITUS
  13. ENALAPRIL MALEATE [Concomitant]

REACTIONS (2)
  - CONVULSION [None]
  - HYPOGLYCAEMIA [None]
